FAERS Safety Report 7854299-X (Version None)
Quarter: 2011Q4

REPORT INFORMATION
  Report Type: 
  Country: None (occurrence: None)
  Receive Date: 20111026
  Receipt Date: 20111020
  Transmission Date: 20120403
  Serious: Yes (Death, Hospitalization, Other)
  Sender: FDA-Public Use
  Company Number: US-ELI_LILLY_AND_COMPANY-US201109005454

PATIENT
  Sex: Male
  Weight: 49.8 kg

DRUGS (5)
  1. ALIMTA [Suspect]
     Indication: HYPOPHARYNGEAL CANCER
     Dosage: 825 MG, EVERY 3 WEEKS
     Dates: start: 20110321, end: 20110321
  2. VITAMIN B-12 [Concomitant]
     Dosage: 1000 MEQ, UNK
     Route: 030
     Dates: start: 20110307
  3. FOLIC ACID [Concomitant]
     Dosage: 1 MG, QD
     Route: 048
     Dates: start: 20110307, end: 20110630
  4. ALIMTA [Suspect]
     Dosage: 820 MG, UNK
     Dates: start: 20110411, end: 20110502
  5. CORTICOSTEROIDS [Concomitant]
     Dosage: 4 MG, BID
     Route: 048
     Dates: start: 20110321, end: 20110504

REACTIONS (3)
  - SPINAL CORD COMPRESSION [None]
  - NEOPLASM PROGRESSION [None]
  - OFF LABEL USE [None]
